FAERS Safety Report 19775618 (Version 1)
Quarter: 2021Q3

REPORT INFORMATION
  Report Type: Spontaneous
  Country: RO (occurrence: RO)
  Receive Date: 20210901
  Receipt Date: 20210901
  Transmission Date: 20211014
  Serious: Yes (Other)
  Sender: FDA-Public Use
  Company Number: NVSC2021RO190328

PATIENT
  Age: 48 Year
  Sex: Male
  Weight: 62 kg

DRUGS (3)
  1. ETOPOSID [Concomitant]
     Active Substance: ETOPOSIDE
     Indication: LUNG NEOPLASM
     Dosage: 160 MG, 3 DAYS
     Route: 042
     Dates: start: 20201110, end: 20201112
  2. CISPLATIN. [Concomitant]
     Active Substance: CISPLATIN
     Indication: LUNG NEOPLASM
     Dosage: 40 MG, 3 DAYS
     Route: 042
     Dates: start: 20201110, end: 20201112
  3. ZIEXTENZO [Suspect]
     Active Substance: PEGFILGRASTIM-BMEZ
     Indication: PROPHYLAXIS
     Dosage: 6 MG (1/21 DAYS)
     Route: 058
     Dates: start: 20201113

REACTIONS (3)
  - Vomiting [Recovered/Resolved]
  - Vertigo [Recovered/Resolved]
  - Syncope [Recovered/Resolved]

NARRATIVE: CASE EVENT DATE: 20201113
